FAERS Safety Report 4594133-7 (Version None)
Quarter: 2005Q1

REPORT INFORMATION
  Report Type: 
  Country: None (occurrence: None)
  Receive Date: 20050301
  Receipt Date: 20050218
  Transmission Date: 20050727
  Serious: Yes (Death, Hospitalization)
  Sender: FDA-Public Use
  Company Number: US-JNJFOC-20041104938

PATIENT
  Sex: Female

DRUGS (13)
  1. REMINYL [Suspect]
     Route: 049
     Dates: start: 20010901, end: 20041106
  2. NITROFURANTOIN [Concomitant]
  3. ACETAMINOPHEN [Concomitant]
  4. STOOL SOFTENERS [Concomitant]
  5. MULTI-VITAMINS [Concomitant]
  6. MULTI-VITAMINS [Concomitant]
  7. MULTI-VITAMINS [Concomitant]
  8. MULTI-VITAMINS [Concomitant]
  9. MULTI-VITAMINS [Concomitant]
  10. MULTI-VITAMINS [Concomitant]
  11. MULTI-VITAMINS [Concomitant]
  12. MULTI-VITAMINS [Concomitant]
  13. VITAMIN E [Concomitant]

REACTIONS (5)
  - DEATH [None]
  - DEMENTIA ALZHEIMER'S TYPE [None]
  - FALL [None]
  - HIP FRACTURE [None]
  - HUMERUS FRACTURE [None]
